FAERS Safety Report 23169358 (Version 1)
Quarter: 2023Q4

REPORT INFORMATION
  Report Type: Spontaneous
  Country: US (occurrence: US)
  Receive Date: 20231110
  Receipt Date: 20231110
  Transmission Date: 20240110
  Serious: No
  Sender: FDA-Public Use
  Company Number: US-Accord-306149

PATIENT
  Sex: Female

DRUGS (5)
  1. SPIRONOLACTONE [Suspect]
     Active Substance: SPIRONOLACTONE
     Indication: Product used for unknown indication
     Dosage: STRENGTH: 25MG, DAILY
     Route: 048
     Dates: start: 202210
  2. ATENOLOL [Concomitant]
     Active Substance: ATENOLOL
  3. LEVOTHYROXINE [Concomitant]
     Active Substance: LEVOTHYROXINE
  4. CITALOPRAM [Concomitant]
     Active Substance: CITALOPRAM HYDROBROMIDE
  5. DIETARY SUPPLEMENT [Concomitant]
     Active Substance: DIETARY SUPPLEMENT

REACTIONS (4)
  - Urine abnormality [Recovered/Resolved]
  - Product odour abnormal [Unknown]
  - Urine odour abnormal [Recovered/Resolved]
  - Dysuria [Recovered/Resolved]
